FAERS Safety Report 7681512-4 (Version None)
Quarter: 2011Q3

REPORT INFORMATION
  Report Type: 
  Country: None (occurrence: None)
  Receive Date: 20110812
  Receipt Date: 20110808
  Transmission Date: 20111222
  Serious: Yes (Other)
  Sender: FDA-Public Use
  Company Number: PHHY2010CA49267

PATIENT
  Sex: Female

DRUGS (8)
  1. COLACE [Concomitant]
     Dosage: UNK UKN, UNK (PRN)
  2. OXAZEPAM [Concomitant]
     Dosage: 15 MG, UNK
  3. CALCIUM CARBONATE [Concomitant]
     Dosage: 500 MG, UNK
  4. ZOLEDRONOC ACID [Suspect]
     Indication: OSTEOPOROSIS
     Dosage: 5 MG, UNK
     Dates: start: 20100720
  5. ZOLEDRONOC ACID [Suspect]
     Dosage: UNK UKN, UNK
     Route: 042
     Dates: start: 20110720
  6. AVALIDE [Concomitant]
     Dosage: 1 DF (150/12.5), UNK
  7. LIPITOR [Concomitant]
     Dosage: 20 UKN, UNK
  8. VITAMIN D [Concomitant]
     Dosage: 400 IU, BID

REACTIONS (3)
  - BRONCHITIS [None]
  - PAIN [None]
  - LUNG INFECTION [None]
